FAERS Safety Report 8621954-3 (Version None)
Quarter: 2012Q3

REPORT INFORMATION
  Report Type: 
  Country: None (occurrence: None)
  Receive Date: 20120823
  Receipt Date: 20120823
  Transmission Date: 20120928
  Serious: Yes (Other)
  Sender: FDA-Public Use
  Company Number: None

PATIENT
  Sex: Female
  Weight: 106.5953 kg

DRUGS (1)
  1. ATORVASTATIN [Suspect]
     Indication: HYPERLIPIDAEMIA
     Dosage: 20 MG NIGHTLY BY MOUTH
     Route: 048

REACTIONS (1)
  - MUSCLE SPASMS [None]
